FAERS Safety Report 5833668-3 (Version None)
Quarter: 2008Q3

REPORT INFORMATION
  Report Type: 
  Country: None (occurrence: None)
  Receive Date: 20080805
  Receipt Date: 20080729
  Transmission Date: 20090109
  Serious: Yes (Hospitalization)
  Sender: FDA-Public Use
  Company Number: FR-ASTRAZENECA-2008CG01143

PATIENT
  Age: 32118 Day
  Sex: Male

DRUGS (13)
  1. CASODEX [Suspect]
     Route: 048
  2. PREVISCAN [Interacting]
     Route: 048
  3. TAHOR [Interacting]
     Route: 048
  4. MEMANTINE HCL [Interacting]
     Route: 048
  5. AMLOR [Concomitant]
     Route: 048
  6. EQUANIL [Concomitant]
     Route: 048
  7. CORVASAL [Concomitant]
     Route: 048
  8. BISOPROLOL FUMARATE [Concomitant]
     Route: 048
  9. LANTUS [Concomitant]
     Route: 058
  10. KAYEXALATE [Concomitant]
     Route: 048
  11. FUMAFER [Concomitant]
     Route: 048
  12. DEBRIDAT [Concomitant]
     Route: 048
  13. LEUPROLIDE ACETATE [Concomitant]
     Route: 058

REACTIONS (2)
  - DRUG INTERACTION [None]
  - RECTAL HAEMORRHAGE [None]
